FAERS Safety Report 9722626 (Version 1)
Quarter: 2013Q4

REPORT INFORMATION
  Report Type: Spontaneous
  Country: US (occurrence: US)
  Receive Date: 20131202
  Receipt Date: 20131202
  Transmission Date: 20140711
  Serious: No
  Sender: FDA-Public Use
  Company Number: US-PFIZER INC-2013340391

PATIENT
  Age: 77 Year
  Sex: Male
  Weight: 109 kg

DRUGS (2)
  1. VIAGRA [Suspect]
     Indication: ERECTILE DYSFUNCTION
     Dosage: 25 MG, UNK
     Route: 048
     Dates: start: 20131113
  2. VIAGRA [Suspect]
     Dosage: 50 MG (TWO TABLETS OF 25MG), UNK
     Route: 048
     Dates: start: 20131115, end: 20131115

REACTIONS (1)
  - Drug ineffective [Unknown]
